FAERS Safety Report 6891190-X (Version None)
Quarter: 2010Q3

REPORT INFORMATION
  Report Type: 
  Country: None (occurrence: None)
  Receive Date: 20100731
  Receipt Date: 20090618
  Transmission Date: 20110219
  Serious: No
  Sender: FDA-Public Use
  Company Number: US-PFIZER INC-2008049486

PATIENT
  Sex: Male
  Weight: 98.639 kg

DRUGS (2)
  1. LIPITOR [Suspect]
     Indication: BLOOD CHOLESTEROL
     Dosage: 20 MG, UNK
     Dates: start: 20060101, end: 20070101
  2. CHANTIX [Suspect]
     Indication: EX-TOBACCO USER
     Dosage: UNK
     Dates: start: 20080601

REACTIONS (2)
  - BLOOD CHOLESTEROL INCREASED [None]
  - DRUG INEFFECTIVE [None]
